FAERS Safety Report 4511459-3 (Version None)
Quarter: 2004Q4

REPORT INFORMATION
  Report Type: 
  Country: None (occurrence: None)
  Receive Date: 20041129
  Receipt Date: 20040819
  Transmission Date: 20050328
  Serious: No
  Sender: FDA-Public Use
  Company Number: US-BRISTOL-MYERS SQUIBB COMPANY-12677548

PATIENT
  Sex: Male

DRUGS (2)
  1. ABILIFY [Suspect]
  2. RISPERDAL [Concomitant]

REACTIONS (1)
  - RESTLESSNESS [None]
